FAERS Safety Report 13897641 (Version 4)
Quarter: 2017Q4

REPORT INFORMATION
  Report Type: Spontaneous
  Country: US (occurrence: US)
  Receive Date: 20170823
  Receipt Date: 20171106
  Transmission Date: 20180320
  Serious: Yes (Other)
  Sender: FDA-Public Use
  Company Number: US-NOVOPROD-559698

PATIENT
  Age: 72 Year
  Sex: Male
  Weight: 89.8 kg

DRUGS (8)
  1. TOPROL XL [Concomitant]
     Active Substance: METOPROLOL SUCCINATE
     Indication: HYPERTENSION
     Dosage: UNK
     Route: 048
  2. NOVOLIN R [Suspect]
     Active Substance: INSULIN HUMAN
     Dosage: 15-18 U, QID
     Route: 058
     Dates: start: 20170817
  3. LASIX [Suspect]
     Active Substance: FUROSEMIDE
     Indication: OEDEMA
     Dosage: 5 MG, QD
     Route: 048
     Dates: start: 2000, end: 201707
  4. NOVOLIN N [Suspect]
     Active Substance: INSULIN HUMAN
     Indication: TYPE 2 DIABETES MELLITUS
     Dosage: 15-18 U, QID
     Route: 058
     Dates: start: 2007, end: 20170814
  5. NOVOLIN R [Suspect]
     Active Substance: INSULIN HUMAN
     Indication: TYPE 2 DIABETES MELLITUS
     Dosage: 15-18 U, QID
     Route: 058
     Dates: start: 2007, end: 20170814
  6. NOVOLIN N [Suspect]
     Active Substance: INSULIN HUMAN
     Dosage: 15-18 U, QID
     Route: 058
     Dates: start: 20170817
  7. LASIX [Suspect]
     Active Substance: FUROSEMIDE
     Dosage: 5 MG, QD
     Route: 048
     Dates: start: 201707
  8. LISINOPRIL. [Concomitant]
     Active Substance: LISINOPRIL
     Indication: PROPHYLAXIS
     Dosage: UNK
     Route: 048

REACTIONS (7)
  - Syncope [Recovered/Resolved]
  - Product storage error [Unknown]
  - Laceration [Recovering/Resolving]
  - Intentional dose omission [Recovered/Resolved]
  - Fall [Recovered/Resolved]
  - Orthostatic hypotension [Not Recovered/Not Resolved]
  - Blood glucose increased [Unknown]

NARRATIVE: CASE EVENT DATE: 2017
